FAERS Safety Report 8389403-0 (Version None)
Quarter: 2012Q2

REPORT INFORMATION
  Report Type: 
  Country: None (occurrence: None)
  Receive Date: 20120528
  Receipt Date: 20120514
  Transmission Date: 20120825
  Serious: Yes (Hospitalization, Other)
  Sender: FDA-Public Use
  Company Number: US-SHIRE-ALL1-2012-02462

PATIENT
  Age: 22 Year
  Sex: Male
  Weight: 75.737 kg

DRUGS (1)
  1. VYVANSE [Suspect]
     Indication: ATTENTION DEFICIT/HYPERACTIVITY DISORDER
     Dosage: 30 MG, 1X/DAY:QD
     Route: 048

REACTIONS (3)
  - ROAD TRAFFIC ACCIDENT [None]
  - UNEVALUABLE EVENT [None]
  - TACHYCARDIA [None]
